FAERS Safety Report 10646040 (Version 9)
Quarter: 2016Q1

REPORT INFORMATION
  Report Type: Report from Study
  Country: ES (occurrence: ES)
  Receive Date: 20141209
  Receipt Date: 20160125
  Transmission Date: 20160525
  Serious: Yes (Death, Life-Threatening, Hospitalization, Other)
  Sender: FDA-Public Use
  Company Number: 2014MPI01503

PATIENT

DRUGS (2)
  1. BRENTUXIMAB VEDOTIN [Suspect]
     Active Substance: BRENTUXIMAB VEDOTIN
     Indication: ANAPLASTIC LARGE-CELL LYMPHOMA
     Dosage: 158 MG, Q21D
     Route: 042
     Dates: start: 20141103, end: 20141103
  2. BRENTUXIMAB VEDOTIN [Suspect]
     Active Substance: BRENTUXIMAB VEDOTIN
     Indication: ANAPLASTIC LARGE-CELL LYMPHOMA

REACTIONS (3)
  - Multiple organ dysfunction syndrome [Fatal]
  - Intestinal perforation [Fatal]
  - Pancreatitis [Fatal]

NARRATIVE: CASE EVENT DATE: 20141110
